FAERS Safety Report 6380186-2 (Version None)
Quarter: 2009Q3

REPORT INFORMATION
  Report Type: 
  Country: None (occurrence: None)
  Receive Date: 20090929
  Receipt Date: 20090921
  Transmission Date: 20100115
  Serious: Yes (Other)
  Sender: FDA-Public Use
  Company Number: US-ELI_LILLY_AND_COMPANY-US200909005021

PATIENT
  Sex: Male

DRUGS (1)
  1. HUMATROPE [Suspect]
     Indication: OFF LABEL USE
     Dosage: 0.8 MG, UNK
     Dates: start: 20090201, end: 20090401

REACTIONS (6)
  - ASTHENIA [None]
  - MASTICATION DISORDER [None]
  - MOBILITY DECREASED [None]
  - NEURODEGENERATIVE DISORDER [None]
  - OFF LABEL USE [None]
  - SPEECH DISORDER [None]
